FAERS Safety Report 14640940 (Version 1)
Quarter: 2018Q1

REPORT INFORMATION
  Report Type: Spontaneous
  Country: UM (occurrence: UM)
  Receive Date: 20180314
  Receipt Date: 20180314
  Transmission Date: 20180509
  Serious: Yes (Hospitalization)
  Sender: FDA-Public Use
  Company Number: None

PATIENT
  Age: 50 Year
  Sex: Female
  Weight: 90 kg

DRUGS (1)
  1. TOPIRAMATE 25 MG SPRINKLE CAPSULES [Suspect]
     Active Substance: TOPIRAMATE
     Indication: MIGRAINE
     Dates: start: 20180307, end: 20180313

REACTIONS (1)
  - Blood pressure decreased [None]

NARRATIVE: CASE EVENT DATE: 20180313
